FAERS Safety Report 6467790-8 (Version None)
Quarter: 2009Q4

REPORT INFORMATION
  Report Type: 
  Country: None (occurrence: None)
  Receive Date: 20091202
  Receipt Date: 20091120
  Transmission Date: 20100525
  Serious: Yes (Hospitalization, Other)
  Sender: FDA-Public Use
  Company Number: US-WYE-H12283709

PATIENT
  Sex: Female
  Weight: 89.89 kg

DRUGS (7)
  1. PRISTIQ [Suspect]
     Indication: DEPRESSION
     Route: 048
     Dates: start: 20090101
  2. LISINOPRIL [Concomitant]
     Dosage: UNKNOWN
     Route: 065
  3. PROVENTIL [Concomitant]
     Dosage: UNKNOWN
     Route: 065
  4. CYANOCOBALAMIN [Concomitant]
     Dosage: UNKNOWN
     Route: 065
  5. ADVAIR DISKUS 100/50 [Concomitant]
     Indication: ASTHMA
     Dosage: UNKNOWN
     Route: 065
  6. KLONOPIN [Concomitant]
     Dosage: UNKNOWN
     Route: 065
  7. VITAMINS WITH MINERALS [Concomitant]
     Dosage: UNKNOWN
     Route: 065

REACTIONS (6)
  - BLOOD CREATININE INCREASED [None]
  - ECZEMA [None]
  - GLOMERULAR FILTRATION RATE INCREASED [None]
  - RENAL FAILURE [None]
  - URTICARIA [None]
  - WEIGHT INCREASED [None]
